FAERS Safety Report 10215732 (Version 1)
Quarter: 2014Q2

REPORT INFORMATION
  Report Type: Spontaneous
  Country: US (occurrence: None)
  Receive Date: 20140520
  Receipt Date: 20140520
  Transmission Date: 20141212
  Serious: Yes (Death)
  Sender: FDA-Public Use
  Company Number: GBI002306

PATIENT
  Age: 42 Year
  Sex: Male

DRUGS (8)
  1. PROFILNINE SD [Suspect]
     Indication: PRODUCT USED FOR UNKNOWN INDICATION
     Route: 042
     Dates: start: 20130401, end: 20130401
  2. LORAZEPAM [Concomitant]
  3. METHYLPREDNISOLONE [Concomitant]
  4. RED BLOOD CELLS [Concomitant]
  5. CRYOPRECIPITATE [Concomitant]
  6. VITAMIN K [Concomitant]
  7. PLATELETS [Concomitant]
  8. PROTAMINE [Concomitant]

REACTIONS (1)
  - Hypotension [None]
